FAERS Safety Report 4613646-2 (Version None)
Quarter: 2005Q1

REPORT INFORMATION
  Report Type: 
  Country: None (occurrence: None)
  Receive Date: 20050315
  Receipt Date: 20030324
  Transmission Date: 20050727
  Serious: Yes (Life-Threatening)
  Sender: FDA-Public Use
  Company Number: 5094

PATIENT
  Age: 34 Year
  Sex: Female

DRUGS (9)
  1. PROPOFOL [Suspect]
     Indication: INDUCTION OF ANAESTHESIA
     Dosage: 676 MG IV
     Route: 042
  2. LIGNOCAINE [Suspect]
     Indication: INDUCTION OF ANAESTHESIA
     Dosage: 20 MG IV
     Route: 042
  3. REMIFENTANIL [Suspect]
     Indication: INDUCTION OF ANAESTHESIA
     Dosage: 3580 MICROGRAM IV
     Route: 042
  4. MORPHINE [Suspect]
     Indication: INDUCTION OF ANAESTHESIA
     Dosage: 10 MG IV
     Route: 042
  5. ATRACURIUM BESYLATE [Suspect]
     Indication: INDUCTION OF ANAESTHESIA
     Dosage: 35 MG IV
     Route: 042
  6. DICLOFENAC [Concomitant]
  7. PARACETAMOL [Concomitant]
  8. ONDANSETRON [Concomitant]
  9. CYCLIZINE [Concomitant]

REACTIONS (3)
  - ANAPHYLACTIC REACTION [None]
  - RASH ERYTHEMATOUS [None]
  - URTICARIA GENERALISED [None]
